FAERS Safety Report 25102377 (Version 1)
Quarter: 2025Q1

REPORT INFORMATION
  Report Type: Spontaneous
  Country: NL (occurrence: NL)
  Receive Date: 20250320
  Receipt Date: 20250320
  Transmission Date: 20250408
  Serious: Yes (Death)
  Sender: MERCK SHARP & DOHME LLC
  Company Number: None

PATIENT
  Age: 85 Year
  Sex: Female
  Weight: 48.3 kg

DRUGS (14)
  1. STROMECTOL [Suspect]
     Active Substance: IVERMECTIN
     Indication: Acarodermatitis
     Dosage: 3 TABLETS ON DAY 1,2,8,9
     Route: 048
     Dates: start: 20250131, end: 20250209
  2. PERMETRIN CREAM 50MG/G / LOXAZOLE CREAM 50MG/G [Concomitant]
     Route: 003
  3. PROMETHAZINE SYRUP 1MG/ML / Brand name not specified [Concomitant]
     Route: 048
  4. SPIRONOLACTONE TABLET 12.5MG / Brand name not specified [Concomitant]
     Route: 048
  5. LORAZEPAM TABLET 1MG / Brand name not specified [Concomitant]
     Route: 048
  6. FOLIC ACID TABLET 0.5MG / Brand name not specified [Concomitant]
     Route: 048
  7. RIVAROXABAN TABLET 20MG / XARELTO TABLET FILM COVER 20MG [Concomitant]
     Route: 048
  8. PARACETAMOL TABLET 500MG / Brand name not specified [Concomitant]
     Route: 048
  9. METOPROLOL TABLET 12.5MG / Brand name not specified [Concomitant]
     Route: 048
  10. ESOMEPRAZOLE TABLET MSR 20MG / NEXIUM TABLET MSR 20MG [Concomitant]
     Route: 048
  11. FUROSEMIDE TABLET 20MG / Brand name not specified [Concomitant]
     Route: 048
  12. LEVOTHYROXINE TABLET 25UG (ACID) / Brand name not specified [Concomitant]
     Route: 048
  13. FENTANYL PLASTER / Brand name not specified [Concomitant]
     Route: 062
  14. COLECALCIFEROL TABLET 5600IU / Brand name not specified [Concomitant]
     Route: 048

REACTIONS (1)
  - Cerebrovascular accident [Fatal]

NARRATIVE: CASE EVENT DATE: 20250209
